FAERS Safety Report 10842398 (Version 4)
Quarter: 2015Q2

REPORT INFORMATION
  Report Type: Spontaneous
  Country: US (occurrence: US)
  Receive Date: 20150220
  Receipt Date: 20150505
  Transmission Date: 20150821
  Serious: No
  Sender: FDA-Public Use
  Company Number: US-PFIZER INC-2015062261

PATIENT
  Age: 65 Year
  Sex: Female
  Weight: 100 kg

DRUGS (8)
  1. LEVOTHYROXINE [Concomitant]
     Active Substance: LEVOTHYROXINE
     Dosage: UNK
     Dates: start: 2009
  2. SPIROLACTONE [Concomitant]
     Active Substance: SPIRONOLACTONE
     Dosage: UNK
  3. SPIROLACTONE [Concomitant]
     Active Substance: SPIRONOLACTONE
     Dosage: UNK
  4. OMEPRAZOLE. [Concomitant]
     Active Substance: OMEPRAZOLE
     Dosage: UNK
     Dates: start: 2009
  5. BENAZEPRIL [Concomitant]
     Active Substance: BENAZEPRIL\BENAZEPRIL HYDROCHLORIDE
     Dosage: UNK
  6. ADVIL [Suspect]
     Active Substance: IBUPROFEN
     Indication: MYALGIA
     Dosage: 200 MG,TWICE A DAY AS NEEDED
     Dates: start: 201412, end: 201501
  7. ADVIL [Suspect]
     Active Substance: IBUPROFEN
     Indication: ARTHRALGIA
  8. EFFEXOR [Concomitant]
     Active Substance: VENLAFAXINE HYDROCHLORIDE
     Dosage: UNK

REACTIONS (5)
  - Product taste abnormal [Recovered/Resolved]
  - Product label issue [Recovered/Resolved]
  - Expired product administered [Recovered/Resolved]
  - Product physical issue [Recovered/Resolved]
  - Glossodynia [Recovered/Resolved]

NARRATIVE: CASE EVENT DATE: 201412
